FAERS Safety Report 13906211 (Version 5)
Quarter: 2017Q4

REPORT INFORMATION
  Report Type: Spontaneous
  Country: JP (occurrence: JP)
  Receive Date: 20170825
  Receipt Date: 20171023
  Transmission Date: 20180320
  Serious: Yes (Death, Hospitalization, Other)
  Sender: FDA-Public Use
  Company Number: JP-SA-2017SA148317

PATIENT
  Age: 79 Year
  Sex: Male
  Weight: 60 kg

DRUGS (27)
  1. CALCIUM LEVOFOLINATE [Concomitant]
     Active Substance: LEVOLEUCOVORIN CALCIUM
     Indication: COLON CANCER
     Route: 042
     Dates: start: 20170629, end: 20170629
  2. IRINOTECAN HYDROCHLORIDE. [Concomitant]
     Active Substance: IRINOTECAN HYDROCHLORIDE
     Indication: COLON CANCER
     Route: 042
     Dates: start: 20170615, end: 20170615
  3. DECADRON [Concomitant]
     Active Substance: DEXAMETHASONE
     Indication: VOMITING
     Route: 048
     Dates: start: 20170720, end: 20170721
  4. CALCIUM LEVOFOLINATE [Concomitant]
     Active Substance: LEVOLEUCOVORIN CALCIUM
     Indication: COLON CANCER
     Route: 042
     Dates: start: 20170719, end: 20170719
  5. NOVAMIN (PROCHLORPERAZINE) [Concomitant]
     Active Substance: PROCHLORPERAZINE
     Indication: VOMITING
     Route: 048
     Dates: start: 20170618, end: 20170618
  6. MAINTATE [Concomitant]
     Active Substance: BISOPROLOL FUMARATE
     Indication: ANGINA PECTORIS
     Route: 048
     Dates: start: 20170804, end: 20170813
  7. ZALTRAP [Suspect]
     Active Substance: ZIV-AFLIBERCEPT
     Indication: COLON CANCER
     Dosage: DOSE: 248 MG/BODY
     Route: 042
     Dates: start: 20170615, end: 20170615
  8. FLUOROURACIL. [Concomitant]
     Active Substance: FLUOROURACIL
     Indication: COLON CANCER
     Route: 042
     Dates: start: 20170629, end: 20170629
  9. FLUOROURACIL. [Concomitant]
     Active Substance: FLUOROURACIL
     Indication: COLON CANCER
     Route: 042
     Dates: start: 20170802, end: 20170802
  10. MAGNESIUM OXIDE. [Concomitant]
     Active Substance: MAGNESIUM OXIDE
     Indication: CONSTIPATION
     Route: 048
     Dates: start: 20170615, end: 20170813
  11. LOPERAMIDE [Concomitant]
     Active Substance: LOPERAMIDE
     Indication: DIARRHOEA
     Route: 048
     Dates: start: 20170802, end: 20170811
  12. DECADRON [Concomitant]
     Active Substance: DEXAMETHASONE
     Indication: VOMITING
     Route: 048
     Dates: start: 20170803, end: 20170804
  13. ZALTRAP [Suspect]
     Active Substance: ZIV-AFLIBERCEPT
     Indication: COLON CANCER
     Dosage: DOSE: 248 MG/BODY
     Route: 042
     Dates: start: 20170719, end: 20170719
  14. ZALTRAP [Suspect]
     Active Substance: ZIV-AFLIBERCEPT
     Indication: COLON CANCER
     Dosage: DOSE: 248 MG/BODY
     Route: 042
     Dates: start: 20170802, end: 20170802
  15. FLUOROURACIL. [Concomitant]
     Active Substance: FLUOROURACIL
     Indication: COLON CANCER
     Route: 042
     Dates: start: 20170719, end: 20170719
  16. CALCIUM LEVOFOLINATE [Concomitant]
     Active Substance: LEVOLEUCOVORIN CALCIUM
     Indication: COLON CANCER
     Route: 042
     Dates: start: 20170802, end: 20170802
  17. IRINOTECAN HYDROCHLORIDE. [Concomitant]
     Active Substance: IRINOTECAN HYDROCHLORIDE
     Indication: COLON CANCER
     Route: 042
     Dates: start: 20170629, end: 20170629
  18. IRINOTECAN HYDROCHLORIDE. [Concomitant]
     Active Substance: IRINOTECAN HYDROCHLORIDE
     Indication: COLON CANCER
     Route: 042
     Dates: start: 20170719, end: 20170719
  19. CALCIUM LEVOFOLINATE [Concomitant]
     Active Substance: LEVOLEUCOVORIN CALCIUM
     Indication: COLON CANCER
     Route: 042
     Dates: start: 20170615, end: 20170615
  20. DECADRON [Concomitant]
     Active Substance: DEXAMETHASONE
     Indication: VOMITING
     Route: 048
     Dates: start: 20170616, end: 20170617
  21. LOXOPROFEN [Concomitant]
     Active Substance: LOXOPROFEN
     Indication: BACK PAIN
     Route: 048
     Dates: start: 20170618, end: 20170625
  22. IRINOTECAN HYDROCHLORIDE. [Concomitant]
     Active Substance: IRINOTECAN HYDROCHLORIDE
     Indication: COLON CANCER
     Route: 042
     Dates: start: 20170802, end: 20170802
  23. DECADRON [Concomitant]
     Active Substance: DEXAMETHASONE
     Indication: VOMITING
     Route: 048
     Dates: start: 20170630, end: 20170701
  24. MIYA-BM [Concomitant]
     Active Substance: CLOSTRIDIUM BUTYRICUM SPORES STRAIN M-55
     Indication: DIARRHOEA
     Route: 048
     Dates: start: 20170804, end: 20170811
  25. ZALTRAP [Suspect]
     Active Substance: ZIV-AFLIBERCEPT
     Indication: COLON CANCER
     Dosage: DOSE: 248 MG/BODY
     Route: 042
     Dates: start: 20170629, end: 20170629
  26. FLUOROURACIL. [Concomitant]
     Active Substance: FLUOROURACIL
     Indication: COLON CANCER
     Route: 042
     Dates: start: 20170615, end: 20170615
  27. MINERALS NOS/VITAMINS NOS/AMINO ACIDS NOS [Concomitant]
     Indication: MALNUTRITION
     Route: 048
     Dates: start: 20170725, end: 20170811

REACTIONS (4)
  - Cardiac failure acute [Fatal]
  - Febrile neutropenia [Recovered/Resolved]
  - Platelet count decreased [Recovering/Resolving]
  - Pneumonia [Recovering/Resolving]

NARRATIVE: CASE EVENT DATE: 20170803
